FAERS Safety Report 8190897-4 (Version None)
Quarter: 2012Q1

REPORT INFORMATION
  Report Type: 
  Country: None (occurrence: None)
  Receive Date: 20120307
  Receipt Date: 20120229
  Transmission Date: 20120608
  Serious: Yes (Hospitalization, Other)
  Sender: FDA-Public Use
  Company Number: US-BAYER-2011-093421

PATIENT
  Age: 32 Year
  Sex: Female
  Weight: 43 kg

DRUGS (2)
  1. ALBUTEROL [Concomitant]
     Indication: ASTHMA
  2. YAZ [Suspect]
     Dosage: UNK
     Dates: start: 20090801, end: 20091001

REACTIONS (6)
  - PULMONARY EMBOLISM [None]
  - INJURY [None]
  - PAIN [None]
  - ANXIETY [None]
  - EMOTIONAL DISTRESS [None]
  - GENERAL PHYSICAL HEALTH DETERIORATION [None]
